FAERS Safety Report 16373392 (Version 1)
Quarter: 2019Q2

REPORT INFORMATION
  Report Type: Spontaneous
  Country: US (occurrence: US)
  Receive Date: 20190530
  Receipt Date: 20190530
  Transmission Date: 20190711
  Serious: No
  Sender: FDA-Public Use
  Company Number: US-SA-2019SA143091

PATIENT
  Sex: Female

DRUGS (1)
  1. PRALUENT [Suspect]
     Active Substance: ALIROCUMAB
     Indication: BLOOD CHOLESTEROL INCREASED
     Dosage: 75 MG, QOW
     Dates: start: 20190404

REACTIONS (4)
  - Dyspnoea [Unknown]
  - Cough [Unknown]
  - Confusional state [Unknown]
  - Wheezing [Unknown]

NARRATIVE: CASE EVENT DATE: 20190516
